FAERS Safety Report 6236825-X (Version None)
Quarter: 2009Q2

REPORT INFORMATION
  Report Type: 
  Country: None (occurrence: None)
  Receive Date: 20090619
  Receipt Date: 20090612
  Transmission Date: 20091009
  Serious: Yes (Death, Hospitalization, Other)
  Sender: FDA-Public Use
  Company Number: PHHY2008JP20212

PATIENT
  Sex: Male

DRUGS (10)
  1. EXJADE [Suspect]
     Indication: IRON OVERLOAD
     Dosage: 500 MG, DAILY
     Route: 048
     Dates: start: 20080723, end: 20090224
  2. CRAVIT [Suspect]
     Dosage: 2 DF DAILY
     Route: 048
     Dates: start: 20080701, end: 20080812
  3. URSO 250 [Suspect]
     Dosage: 600 MG, UNK
     Route: 048
     Dates: start: 20060906
  4. MECOBALAMIN [Concomitant]
     Dosage: 180 MG, UNK
     Route: 048
  5. ZANTAC [Concomitant]
     Dosage: 150 MG, UNK
     Route: 048
  6. PURSENNID [Concomitant]
     Dosage: 2 DF, UNK
     Route: 048
  7. CYANOCOBALAMIN [Concomitant]
     Dosage: 1500 UG, UNK
     Route: 048
     Dates: end: 20090224
  8. BUP-4 [Concomitant]
     Dosage: 10 MG, UNK
     Route: 048
     Dates: start: 20081203, end: 20090224
  9. PREDNISOLONE [Concomitant]
     Dosage: 30 MG, UNK
     Route: 048
     Dates: start: 20081201, end: 20090224
  10. ONEALFA [Concomitant]
     Dosage: 0.5 UG, UNK
     Route: 048
     Dates: start: 20081201, end: 20090224

REACTIONS (9)
  - ALANINE AMINOTRANSFERASE INCREASED [None]
  - ASPARTATE AMINOTRANSFERASE INCREASED [None]
  - BLOOD LACTATE DEHYDROGENASE INCREASED [None]
  - BLOOD UREA INCREASED [None]
  - CONDITION AGGRAVATED [None]
  - INTERSTITIAL LUNG DISEASE [None]
  - LYMPHOCYTE COUNT DECREASED [None]
  - URTICARIA [None]
  - WHITE BLOOD CELL COUNT INCREASED [None]
